FAERS Safety Report 13545543 (Version 1)
Quarter: 2017Q2

REPORT INFORMATION
  Report Type: Spontaneous
  Country: US (occurrence: US)
  Receive Date: 20170515
  Receipt Date: 20170515
  Transmission Date: 20170830
  Serious: No
  Sender: FDA-Public Use
  Company Number: US-PFIZER INC-2017208882

PATIENT
  Age: 7 Year
  Sex: Male
  Weight: 26.31 kg

DRUGS (3)
  1. QUILLIVANT XR [Suspect]
     Active Substance: METHYLPHENIDATE HYDROCHLORIDE
     Dosage: 4 ML, UNK
     Dates: start: 2017, end: 2017
  2. QUILLIVANT XR [Suspect]
     Active Substance: METHYLPHENIDATE HYDROCHLORIDE
     Dosage: 3 ML, UNK
     Dates: start: 2017
  3. QUILLIVANT XR [Suspect]
     Active Substance: METHYLPHENIDATE HYDROCHLORIDE
     Indication: ATTENTION DEFICIT/HYPERACTIVITY DISORDER
     Dosage: 3 ML, UNK
     Dates: start: 20170326, end: 2017

REACTIONS (3)
  - Drug effect incomplete [Unknown]
  - Paranoia [Recovered/Resolved]
  - Social avoidant behaviour [Recovered/Resolved]

NARRATIVE: CASE EVENT DATE: 2017
